FAERS Safety Report 5383346-2 (Version None)
Quarter: 2007Q3

REPORT INFORMATION
  Report Type: 
  Country: None (occurrence: None)
  Receive Date: 20070710
  Receipt Date: 20070628
  Transmission Date: 20080115
  Serious: Yes (Other)
  Sender: FDA-Public Use
  Company Number: IE-PFIZER INC-2007054348

PATIENT
  Age: 61 Year
  Sex: Male

DRUGS (2)
  1. LIPITOR [Suspect]
     Route: 048
  2. DRUG, UNSPECIFIED [Concomitant]

REACTIONS (2)
  - NEURALGIA [None]
  - PAIN IN EXTREMITY [None]
